FAERS Safety Report 25389908 (Version 1)
Quarter: 2025Q2

REPORT INFORMATION
  Report Type: Spontaneous
  Country: US (occurrence: None)
  Receive Date: 20250602
  Receipt Date: 20250602
  Transmission Date: 20250717
  Serious: No
  Sender: FDA-CTU
  Company Number: None

PATIENT
  Age: 93 Year
  Sex: Male
  Weight: 70 kg

DRUGS (1)
  1. PEMBROLIZUMAB [Suspect]
     Active Substance: PEMBROLIZUMAB
     Indication: Oesophageal carcinoma
     Route: 042
     Dates: start: 20240123, end: 20240307

REACTIONS (3)
  - Cardiomyopathy [None]
  - Atrioventricular block [None]
  - Myocarditis [None]

NARRATIVE: CASE EVENT DATE: 20240307
